FAERS Safety Report 4835942-6 (Version None)
Quarter: 2005Q4

REPORT INFORMATION
  Report Type: 
  Country: None (occurrence: None)
  Receive Date: 20051118
  Receipt Date: 20051115
  Transmission Date: 20060501
  Serious: Yes (Other)
  Sender: FDA-Public Use
  Company Number: TR-2005-022787

PATIENT
  Age: 34 Year
  Sex: Female
  Weight: 89 kg

DRUGS (6)
  1. YASMIN [Suspect]
     Indication: POLYCYSTIC OVARIES
     Dosage: 1 TAB (S), 1X/DAY, ORAL
     Route: 048
     Dates: start: 20051025
  2. GLUCOPHAGE (METFORMIN) FILM TABLET [Concomitant]
  3. ALFASID INJECTION (AMPICILLIN SODIUM, SULBACTAM SODIUM) [Concomitant]
  4. THERAFLU /TUR/ (PIPERYLONE MALEATE, CODEINE PHOSPHATE) [Concomitant]
  5. PANTO (PANTOPRAZOLE SODIUM) [Concomitant]
  6. GAVISCON [Concomitant]

REACTIONS (4)
  - CONVULSION [None]
  - DYSGEUSIA [None]
  - INFECTION [None]
  - SLEEP DISORDER [None]
